FAERS Safety Report 15334865 (Version 2)
Quarter: 2018Q3

REPORT INFORMATION
  Report Type: Spontaneous
  Country: ES (occurrence: ES)
  Receive Date: 20180830
  Receipt Date: 20180830
  Transmission Date: 20181010
  Serious: Yes (Other)
  Sender: FDA-Public Use
  Company Number: PHHY2018ES083655

PATIENT
  Age: 15 Year
  Sex: Male
  Weight: 53.6 kg

DRUGS (9)
  1. CICLOSPORIN [Suspect]
     Active Substance: CYCLOSPORINE
     Indication: IMMUNOSUPPRESSION
     Dosage: 85 MG, Q12H
     Route: 042
     Dates: start: 20171108, end: 20171212
  2. VANCOMICINA [Concomitant]
     Active Substance: VANCOMYCIN
     Indication: PROPHYLAXIS
     Dosage: 500 MG, Q6H
     Route: 042
     Dates: start: 20171101, end: 20171109
  3. HEPARINA SODICA [Concomitant]
     Active Substance: HEPARIN SODIUM
     Indication: PRODUCT USED FOR UNKNOWN INDICATION
     Dosage: UNK
     Route: 042
  4. MEROPENEM. [Concomitant]
     Active Substance: MEROPENEM
     Indication: PROPHYLAXIS
     Dosage: 2000 MG, Q8H
     Route: 042
     Dates: start: 20171107, end: 20171109
  5. METHOTREXATE (METHOTREXATE SODIUM) [Concomitant]
     Active Substance: METHOTREXATE SODIUM
     Indication: PRODUCT USED FOR UNKNOWN INDICATION
     Dosage: 16 MG, QD
     Route: 042
     Dates: start: 20171110, end: 20171117
  6. FUROSEMIDA [Concomitant]
     Active Substance: FUROSEMIDE
     Indication: PRODUCT USED FOR UNKNOWN INDICATION
     Dosage: 5 MG, Q4H
     Route: 042
     Dates: start: 20171110, end: 20171111
  7. AMBISOME [Concomitant]
     Active Substance: AMPHOTERICIN B
     Indication: PROPHYLAXIS
     Dosage: 55 MG, QD (POLVO PARA DISPERSI?N PARA)
     Route: 042
     Dates: start: 20171109, end: 20171205
  8. HEPARINA SODICA [Concomitant]
     Active Substance: HEPARIN SODIUM
     Dosage: UNK
     Route: 042
     Dates: start: 20171102, end: 20171201
  9. ACICLOVIR [Concomitant]
     Active Substance: ACYCLOVIR
     Indication: PROPHYLAXIS
     Dosage: 200 MG, Q8H
     Route: 042
     Dates: start: 20171109, end: 20171207

REACTIONS (2)
  - Acute kidney injury [Recovered/Resolved]
  - Hypomagnesaemia [Recovered/Resolved]

NARRATIVE: CASE EVENT DATE: 20171120
